FAERS Safety Report 11849895 (Version 2)
Quarter: 2016Q1

REPORT INFORMATION
  Report Type: Report from Study
  Country: US (occurrence: US)
  Receive Date: 20151218
  Receipt Date: 20160118
  Transmission Date: 20160526
  Serious: Yes (Hospitalization)
  Sender: FDA-Public Use
  Company Number: US-GILEAD-2015-0188462

PATIENT
  Age: 79 Year
  Sex: Female

DRUGS (2)
  1. IDELALISIB [Suspect]
     Active Substance: IDELALISIB
     Dosage: 150 MG, UNK
     Route: 048
     Dates: start: 2015
  2. IDELALISIB [Suspect]
     Active Substance: IDELALISIB
     Indication: CHRONIC LYMPHOCYTIC LEUKAEMIA
     Dosage: 150 MG, UNK
     Route: 048
     Dates: start: 20150827, end: 2015

REACTIONS (9)
  - Pleural effusion [Unknown]
  - Aphthous ulcer [Unknown]
  - Dizziness [Unknown]
  - Non-cardiac chest pain [Unknown]
  - Dry mouth [Unknown]
  - Gastrooesophageal reflux disease [Unknown]
  - Stomatitis [Unknown]
  - Balance disorder [Unknown]
  - Tooth fracture [Unknown]

NARRATIVE: CASE EVENT DATE: 201512
